FAERS Safety Report 9562621 (Version 1)
Quarter: 2013Q3

REPORT INFORMATION
  Report Type: Spontaneous
  Country: DE (occurrence: DE)
  Receive Date: 20130927
  Receipt Date: 20130927
  Transmission Date: 20140515
  Serious: Yes (Disabling)
  Sender: FDA-Public Use
  Company Number: DE-BAXTER-2013BAX037188

PATIENT
  Sex: Female
  Weight: 62 kg

DRUGS (3)
  1. ENDOXAN 1G [Suspect]
     Indication: BREAST CANCER
     Route: 065
     Dates: start: 201301, end: 201304
  2. DOCETAXEL [Suspect]
     Indication: BREAST CANCER
     Route: 065
     Dates: start: 201301, end: 201304
  3. DOXORUBICIN [Suspect]
     Indication: BREAST CANCER
     Route: 065
     Dates: start: 201301, end: 201304

REACTIONS (1)
  - Toxic neuropathy [Not Recovered/Not Resolved]
